FAERS Safety Report 20631612 (Version 1)
Quarter: 2022Q1

REPORT INFORMATION
  Report Type: Spontaneous
  Country: US (occurrence: None)
  Receive Date: 20220323
  Receipt Date: 20220323
  Transmission Date: 20220424
  Serious: Yes (Other)
  Sender: FDA-Public Use
  Company Number: None

PATIENT
  Age: 79 Year
  Sex: Male
  Weight: 49.5 kg

DRUGS (1)
  1. BREO ELLIPTA [Suspect]
     Active Substance: FLUTICASONE FUROATE\VILANTEROL TRIFENATATE
     Indication: Chronic obstructive pulmonary disease
     Dosage: OTHER QUANTITY : 1 INHALATION(S);?FREQUENCY : DAILY;?
     Route: 055
     Dates: start: 20220309, end: 20220320

REACTIONS (4)
  - Dysuria [None]
  - Insomnia [None]
  - Micturition urgency [None]
  - Urinary incontinence [None]

NARRATIVE: CASE EVENT DATE: 20220309
